FAERS Safety Report 13440332 (Version 1)
Quarter: 2017Q2

REPORT INFORMATION
  Report Type: Spontaneous
  Country: US (occurrence: US)
  Receive Date: 20170413
  Receipt Date: 20170413
  Transmission Date: 20170830
  Serious: Yes (Other)
  Sender: FDA-Public Use
  Company Number: US-ZYDUS-014552

PATIENT
  Age: 52 Year
  Sex: Female

DRUGS (3)
  1. METHOTREXATE. [Suspect]
     Active Substance: METHOTREXATE
     Indication: CHEMOTHERAPY
     Route: 037
  2. METHOTREXATE. [Suspect]
     Active Substance: METHOTREXATE
     Indication: CHEMOTHERAPY
     Route: 037
  3. METHOTREXATE. [Suspect]
     Active Substance: METHOTREXATE
     Indication: CHEMOTHERAPY
     Route: 042

REACTIONS (10)
  - CSF myelin basic protein increased [Unknown]
  - Paraplegia [Recovered/Resolved]
  - Ataxia [Unknown]
  - Pleocytosis [Unknown]
  - Muscular weakness [Recovering/Resolving]
  - Myelopathy [Unknown]
  - Meningitis aseptic [Unknown]
  - Incontinence [Unknown]
  - White matter lesion [Recovered/Resolved]
  - Protein total increased [Unknown]
